FAERS Safety Report 22111600 (Version 1)
Quarter: 2023Q1

REPORT INFORMATION
  Report Type: Spontaneous
  Country: US (occurrence: US)
  Receive Date: 20230318
  Receipt Date: 20230318
  Transmission Date: 20230418
  Serious: No
  Sender: FDA-Public Use
  Company Number: US-MACLEODS PHARMACEUTICALS US LTD-MAC2023040279

PATIENT

DRUGS (1)
  1. TRIAMCINOLONE [Suspect]
     Active Substance: TRIAMCINOLONE
     Indication: Dermatitis
     Dosage: UNK UNK, BID (NDC: 16714-986-04)
     Route: 061
     Dates: start: 202211, end: 20230305

REACTIONS (2)
  - Penile burning sensation [Unknown]
  - Urinary tract discomfort [Unknown]
